FAERS Safety Report 24540390 (Version 1)
Quarter: 2024Q4

REPORT INFORMATION
  Report Type: Report from Study
  Country: AE (occurrence: AE)
  Receive Date: 20241023
  Receipt Date: 20241023
  Transmission Date: 20250115
  Serious: Yes (Hospitalization, Other)
  Sender: TAKEDA
  Company Number: AE-TAKEDA-2024TUS099583

PATIENT

DRUGS (1)
  1. HUMAN IMMUNOGLOBULIN G\HYALURONIDASE RECOMBINANT HUMAN [Suspect]
     Active Substance: HUMAN IMMUNOGLOBULIN G\HYALURONIDASE (HUMAN RECOMBINANT)
     Indication: Secondary immunodeficiency
     Dosage: 40 GRAM, Q4WEEKS
     Route: 058

REACTIONS (2)
  - Ascites [Unknown]
  - Product storage error [Unknown]

NARRATIVE: CASE EVENT DATE: 20241007
